FAERS Safety Report 12387810 (Version 1)
Quarter: 2016Q2

REPORT INFORMATION
  Report Type: Spontaneous
  Country: MQ (occurrence: MQ)
  Receive Date: 20160520
  Receipt Date: 20160520
  Transmission Date: 20160815
  Serious: Yes (Death, Other)
  Sender: FDA-Public Use
  Company Number: MQ-AMGEN-MTQSP2016064149

PATIENT

DRUGS (2)
  1. KYPROLIS [Suspect]
     Active Substance: CARFILZOMIB
     Indication: PRODUCT USED FOR UNKNOWN INDICATION
     Dosage: UNK
     Route: 065
  2. KYPROLIS [Suspect]
     Active Substance: CARFILZOMIB
     Dosage: 20/27 MG/M2,
     Route: 065

REACTIONS (4)
  - Septic shock [Fatal]
  - Aspergillus infection [Fatal]
  - Renal failure [Fatal]
  - Disease progression [Fatal]

NARRATIVE: CASE EVENT DATE: 201605
